FAERS Safety Report 5963994-9 (Version None)
Quarter: 2008Q4

REPORT INFORMATION
  Report Type: 
  Country: None (occurrence: None)
  Receive Date: 20081124
  Receipt Date: 20081111
  Transmission Date: 20090506
  Serious: No
  Sender: FDA-Public Use
  Company Number: GB-ELI_LILLY_AND_COMPANY-GB200811002993

PATIENT
  Age: 50 Year
  Sex: Male

DRUGS (3)
  1. ZYPREXA [Suspect]
     Indication: SCHIZOPHRENIA
     Dosage: 20 MG, UNK
  2. METHADONE HCL [Concomitant]
  3. ALMOTRIPTAN [Concomitant]

REACTIONS (1)
  - LEUKOPENIA [None]
